FAERS Safety Report 6390496-0 (Version None)
Quarter: 2009Q4

REPORT INFORMATION
  Report Type: 
  Country: None (occurrence: None)
  Receive Date: 20091003
  Receipt Date: 20030220
  Transmission Date: 20100525
  Serious: Yes (Death, Hospitalization, Other)
  Sender: FDA-Public Use
  Company Number: 003#3#2003-00021

PATIENT
  Age: 82 Year
  Sex: Female

DRUGS (5)
  1. TYLENOL W/ CODEINE NO. 3 [Suspect]
     Indication: INTENTIONAL OVERDOSE
     Dosage: (ORAL)
     Route: 048
  2. IBUPROFEN [Suspect]
     Indication: INTENTIONAL OVERDOSE
     Dosage: (ORAL)
     Route: 048
  3. CALCICHEW /00108001/ (CALCICHEW D3) (NOT SPECIFIED) [Suspect]
  4. ASPIRIN [Suspect]
  5. CO-AMILOFRUSE (CO-AMILOFRUSE) (NOT SPECIFIED) [Suspect]

REACTIONS (11)
  - ALANINE AMINOTRANSFERASE INCREASED [None]
  - AORTIC ANEURYSM RUPTURE [None]
  - BLOOD ALKALINE PHOSPHATASE INCREASED [None]
  - CARDIAC ARREST [None]
  - ELECTROMECHANICAL DISSOCIATION [None]
  - HAEMOTHORAX [None]
  - HEPATOCELLULAR INJURY [None]
  - MEDIASTINAL HAEMORRHAGE [None]
  - MULTIPLE DRUG OVERDOSE INTENTIONAL [None]
  - PROTHROMBIN LEVEL INCREASED [None]
  - SUICIDAL IDEATION [None]
